FAERS Safety Report 6475525-8 (Version None)
Quarter: 2009Q4

REPORT INFORMATION
  Report Type: 
  Country: None (occurrence: None)
  Receive Date: 20091204
  Receipt Date: 20091201
  Transmission Date: 20100525
  Serious: Yes (Life-Threatening, Hospitalization)
  Sender: FDA-Public Use
  Company Number: PHHO2009BR14957

PATIENT
  Sex: Male
  Weight: 77.1 kg

DRUGS (3)
  1. CERTICAN [Suspect]
     Indication: LIVER TRANSPLANT
     Dosage: 1MG/DAY
     Route: 048
     Dates: start: 20091105, end: 20091125
  2. TACROLIMUS COMP-TAC+ [Suspect]
     Indication: LIVER TRANSPLANT
     Dosage: 8MG + 9MG/DAY
     Route: 048
     Dates: start: 20091006
  3. INSULIN [Concomitant]

REACTIONS (4)
  - HEPATIC ARTERY THROMBOSIS [None]
  - KLEBSIELLA INFECTION [None]
  - PYREXIA [None]
  - THROMBOCYTOPENIA [None]
